FAERS Safety Report 15228084 (Version 1)
Quarter: 2018Q3

REPORT INFORMATION
  Report Type: Spontaneous
  Country: GB (occurrence: GB)
  Receive Date: 20180801
  Receipt Date: 20180801
  Transmission Date: 20181010
  Serious: Yes (Other)
  Sender: FDA-Public Use
  Company Number: GB-TEVA-2018-GB-933310

PATIENT
  Age: 72 Year
  Sex: Female
  Weight: 104.04 kg

DRUGS (16)
  1. CASSIA [Concomitant]
  2. CODEINE PHOSPHATE [Concomitant]
     Active Substance: CODEINE PHOSPHATE
  3. LORATADINE. [Concomitant]
     Active Substance: LORATADINE
  4. FUROSEMIDE. [Concomitant]
     Active Substance: FUROSEMIDE
  5. IBUPROFEN. [Concomitant]
     Active Substance: IBUPROFEN
  6. METANIUM [Concomitant]
  7. DERMOL [Concomitant]
     Active Substance: BENZALKONIUM CHLORIDE\CHLORHEXIDINE HYDROCHLORIDE\ISOPROPYL MYRISTATE\PARAFFIN
  8. DOXYCYCLINE. [Concomitant]
     Active Substance: DOXYCYCLINE
  9. FERROUS FUMARATE [Concomitant]
     Active Substance: FERROUS FUMARATE
  10. AMOXICILLIN. [Suspect]
     Active Substance: AMOXICILLIN
     Dosage: 1500 MILLIGRAM DAILY;
     Route: 048
     Dates: start: 20180628, end: 20180629
  11. PARACETAMOL [Concomitant]
     Active Substance: ACETAMINOPHEN
  12. GABAPENTIN. [Concomitant]
     Active Substance: GABAPENTIN
  13. SERTRALINE [Concomitant]
     Active Substance: SERTRALINE HYDROCHLORIDE
  14. COLECALCIFEROL [Concomitant]
     Active Substance: CHOLECALCIFEROL
  15. SANDO?K [Concomitant]
     Active Substance: POTASSIUM BICARBONATE\POTASSIUM CHLORIDE
  16. RANITIDINE. [Concomitant]
     Active Substance: RANITIDINE

REACTIONS (4)
  - Hypersensitivity [Unknown]
  - Pruritus [Unknown]
  - Erythema multiforme [Unknown]
  - Skin discolouration [Unknown]

NARRATIVE: CASE EVENT DATE: 20180628
